FAERS Safety Report 6501769-2 (Version None)
Quarter: 2009Q4

REPORT INFORMATION
  Report Type: 
  Country: None (occurrence: None)
  Receive Date: 20091216
  Receipt Date: 20091208
  Transmission Date: 20100525
  Serious: No
  Sender: FDA-Public Use
  Company Number: US-JNJFOC-20091203052

PATIENT
  Sex: Female
  Weight: 83.92 kg

DRUGS (4)
  1. INVEGA [Suspect]
     Indication: BIPOLAR DISORDER
     Route: 048
  2. SYNTHROID [Concomitant]
     Indication: HYPOTHYROIDISM
     Route: 048
  3. RESTORIL [Concomitant]
     Indication: SLEEP DISORDER
     Route: 048
  4. ADVAIR DISKUS 100/50 [Concomitant]
     Indication: ASTHMA
     Route: 055

REACTIONS (1)
  - RESTLESSNESS [None]
